FAERS Safety Report 6954938-1 (Version None)
Quarter: 2010Q3

REPORT INFORMATION
  Report Type: 
  Country: None (occurrence: None)
  Receive Date: 20100830
  Receipt Date: 20100817
  Transmission Date: 20110219
  Serious: Yes (Hospitalization)
  Sender: FDA-Public Use
  Company Number: PHHY2010IL54497

PATIENT
  Age: 85 Year
  Sex: Male

DRUGS (1)
  1. SANDOSTATIN LAR [Suspect]
     Indication: NEUROENDOCRINE TUMOUR
     Dosage: 30 MG MONTHLY
     Route: 030
     Dates: start: 20050101

REACTIONS (2)
  - MALIGNANT NEOPLASM PROGRESSION [None]
  - URINARY TRACT DISORDER [None]
